FAERS Safety Report 6002510-2 (Version None)
Quarter: 2008Q4

REPORT INFORMATION
  Report Type: 
  Country: None (occurrence: None)
  Receive Date: 20081215
  Receipt Date: 20071210
  Transmission Date: 20090506
  Serious: No
  Sender: FDA-Public Use
  Company Number: US-AMGEN-KDL253925

PATIENT
  Sex: Female

DRUGS (6)
  1. ENBREL [Suspect]
     Indication: RHEUMATOID ARTHRITIS
     Route: 058
     Dates: start: 20071001
  2. METHOTREXATE [Concomitant]
     Dates: start: 20050101
  3. LISINOPRIL [Concomitant]
  4. ATIVAN [Concomitant]
  5. AREDIA [Concomitant]
  6. ACIPHEX [Concomitant]

REACTIONS (8)
  - FALL [None]
  - GINGIVAL PAIN [None]
  - HEAD INJURY [None]
  - INJECTION SITE PAIN [None]
  - JOINT INJURY [None]
  - LOWER LIMB FRACTURE [None]
  - MOUTH ULCERATION [None]
  - PAIN [None]
